FAERS Safety Report 7329393-2 (Version None)
Quarter: 2011Q1

REPORT INFORMATION
  Report Type: 
  Country: None (occurrence: None)
  Receive Date: 20110228
  Receipt Date: 20110228
  Transmission Date: 20110831
  Serious: Yes (Other)
  Sender: FDA-Public Use
  Company Number: None

PATIENT
  Sex: Female
  Weight: 52.1637 kg

DRUGS (2)
  1. RECLAST [Suspect]
     Dosage: 5 MG YEARLY IV DRIP
     Route: 041
  2. ACTONEL [Suspect]
     Indication: OSTEOPOROSIS
     Dosage: 35 MG WEEKLY PO
     Route: 048
     Dates: start: 20030901, end: 20080715

REACTIONS (2)
  - OSTEONECROSIS OF JAW [None]
  - ARTHRALGIA [None]
